FAERS Safety Report 12724096 (Version 1)
Quarter: 2016Q3

REPORT INFORMATION
  Report Type: Spontaneous
  Country: US (occurrence: US)
  Receive Date: 20160904
  Receipt Date: 20160904
  Transmission Date: 20161109
  Serious: Yes (Disabling)
  Sender: FDA-Public Use
  Company Number: None

PATIENT
  Age: 23 Year
  Sex: Female
  Weight: 65.25 kg

DRUGS (1)
  1. CIPROFLOXACIN. [Suspect]
     Active Substance: CIPROFLOXACIN
     Indication: URINARY TRACT INFECTION
     Dates: start: 20160822, end: 20160826

REACTIONS (5)
  - Asthenia [None]
  - Dizziness [None]
  - Myalgia [None]
  - Arthralgia [None]
  - Fear [None]

NARRATIVE: CASE EVENT DATE: 20160822
